FAERS Safety Report 6397761-1 (Version None)
Quarter: 2009Q4

REPORT INFORMATION
  Report Type: 
  Country: None (occurrence: None)
  Receive Date: 20091012
  Receipt Date: 20091006
  Transmission Date: 20100525
  Serious: Yes (Other)
  Sender: FDA-Public Use
  Company Number: DK-AMGEN-QUU367634

PATIENT
  Sex: Male

DRUGS (5)
  1. ARANESP [Suspect]
     Indication: DRUG USE FOR UNKNOWN INDICATION
     Dates: start: 20090525, end: 20090703
  2. MAGNESIUM OXIDE [Concomitant]
     Route: 048
  3. FERROUS SULFATE TAB [Concomitant]
     Route: 048
  4. SINEMET [Concomitant]
     Route: 048
  5. ACETAMINOPHEN [Concomitant]
     Route: 054

REACTIONS (4)
  - APATHY [None]
  - DYSKINESIA [None]
  - SPEECH DISORDER [None]
  - STARING [None]
